FAERS Safety Report 21104867 (Version 1)
Quarter: 2022Q3

REPORT INFORMATION
  Report Type: Spontaneous
  Country: US (occurrence: US)
  Receive Date: 20220720
  Receipt Date: 20220720
  Transmission Date: 20221026
  Serious: No
  Sender: FDA-Public Use
  Company Number: US-JNJFOC-20220655884

PATIENT
  Age: 36 Year
  Sex: Male
  Weight: 81.720 kg

DRUGS (1)
  1. REMICADE [Suspect]
     Active Substance: INFLIXIMAB
     Indication: Colitis ulcerative
     Route: 041
     Dates: start: 202206

REACTIONS (3)
  - Psoriasis [Unknown]
  - Tonsillitis [Unknown]
  - Foot and mouth disease [Unknown]

NARRATIVE: CASE EVENT DATE: 20220601
